FAERS Safety Report 10190364 (Version 2)
Quarter: 2014Q2

REPORT INFORMATION
  Report Type: Spontaneous
  Country: JP (occurrence: JP)
  Receive Date: 20140522
  Receipt Date: 20140606
  Transmission Date: 20141212
  Serious: Yes (Death, Other)
  Sender: FDA-Public Use
  Company Number: JP-JNJFOC-20140510357

PATIENT
  Age: 82 Year
  Sex: Male
  Weight: 76 kg

DRUGS (11)
  1. XARELTO [Suspect]
     Indication: THROMBOSIS PROPHYLAXIS
     Route: 048
     Dates: start: 20120519, end: 20140507
  2. PREMINENT [Suspect]
     Indication: HYPERTENSION
     Route: 048
     Dates: start: 20080328
  3. CRESTOR [Suspect]
     Indication: DYSLIPIDAEMIA
     Route: 048
     Dates: start: 20080328
  4. KETOBUN A [Suspect]
     Indication: HYPERURICAEMIA
     Route: 048
     Dates: start: 20080328
  5. BISOPROLOL [Suspect]
     Indication: CARDIAC FAILURE
     Route: 048
     Dates: start: 20080328, end: 20140426
  6. BISOPROLOL [Suspect]
     Indication: CARDIAC FAILURE
     Route: 048
     Dates: start: 20140426, end: 20140507
  7. BISOPROLOL [Suspect]
     Indication: CARDIAC FAILURE CHRONIC
     Route: 048
     Dates: start: 20140426, end: 20140507
  8. BISOPROLOL [Suspect]
     Indication: CARDIAC FAILURE CHRONIC
     Route: 048
     Dates: start: 20080328, end: 20140426
  9. NIFEDIPINE [Suspect]
     Indication: HYPERTENSION
     Route: 048
     Dates: start: 20080328, end: 20140507
  10. DIART [Suspect]
     Indication: CARDIAC FAILURE CHRONIC
     Route: 048
     Dates: start: 20140426, end: 20140501
  11. SPIRONOLACTONE [Suspect]
     Indication: CARDIAC FAILURE CHRONIC
     Route: 048
     Dates: start: 20140426, end: 20140507

REACTIONS (2)
  - Sudden death [Fatal]
  - Cardiac failure chronic [Recovering/Resolving]
